FAERS Safety Report 8539522-0 (Version None)
Quarter: 2012Q3

REPORT INFORMATION
  Report Type: 
  Country: None (occurrence: None)
  Receive Date: 20120726
  Receipt Date: 20120716
  Transmission Date: 20120928
  Serious: Yes (Hospitalization)
  Sender: FDA-Public Use
  Company Number: US-BAYER-2012-072242

PATIENT
  Age: 49 Year
  Sex: Female
  Weight: 121.54 kg

DRUGS (16)
  1. YAZ [Suspect]
  2. DARVOCET [Concomitant]
     Dosage: UNK UNK, PRN
  3. CELEBREX [Concomitant]
     Dosage: UNK UNK, PRN
  4. ROCEPHIN [Concomitant]
     Dosage: 1 G, UNK
     Route: 030
     Dates: start: 20100928
  5. XANAX [Concomitant]
     Dosage: 1 MG, TWO TABLETS IN THE MORNING AND NIGHT
     Route: 048
  6. BIAXIN [Concomitant]
  7. CYMBALTA [Concomitant]
     Dosage: 60 MG, BID
  8. DEPO-MEDROL [Concomitant]
     Dosage: UNK
  9. MOBIC [Concomitant]
     Dosage: UNK UNK, PRN
  10. SEROQUEL [Concomitant]
     Dosage: 100 MG, HS
  11. AMBIEN [Concomitant]
     Dosage: UNK UNK, PRN
  12. LAMICTAL [Concomitant]
     Dosage: 200 MG, QD
     Route: 048
  13. ZITHROMAX [Concomitant]
     Dosage: UNK
  14. PRILOSEC [Concomitant]
     Dosage: 20 MG, QD
  15. ALBUTEROL [Concomitant]
     Dosage: 1 PUFF(S), BID
     Route: 045
  16. TOPAMAX [Concomitant]
     Dosage: 100 MG, HS

REACTIONS (1)
  - PULMONARY EMBOLISM [None]
